FAERS Safety Report 22995231 (Version 2)
Quarter: 2023Q4

REPORT INFORMATION
  Report Type: Report from Study
  Country: CA (occurrence: CA)
  Receive Date: 20230927
  Receipt Date: 20231002
  Transmission Date: 20240110
  Serious: No
  Sender: FDA-Public Use
  Company Number: CA-TAKEDA-2021TUS021635

PATIENT
  Age: 32 Year
  Sex: Female

DRUGS (4)
  1. VEDOLIZUMAB [Suspect]
     Active Substance: VEDOLIZUMAB
     Indication: Colitis ulcerative
     Dosage: 300 MILLIGRAM
     Route: 042
     Dates: start: 20170308
  2. VEDOLIZUMAB [Suspect]
     Active Substance: VEDOLIZUMAB
     Dosage: 300 MILLIGRAM, Q4WEEKS
     Route: 042
     Dates: start: 20200330
  3. Salofalk [Concomitant]
     Dosage: UNK
  4. STELARA [Concomitant]
     Active Substance: USTEKINUMAB
     Dosage: UNK UNK, MONTHLY

REACTIONS (3)
  - No adverse event [Unknown]
  - Off label use [Unknown]
  - Pregnancy [Unknown]

NARRATIVE: CASE EVENT DATE: 20200330
